FAERS Safety Report 25025559 (Version 1)
Quarter: 2025Q1

REPORT INFORMATION
  Report Type: Spontaneous
  Country: FR (occurrence: FR)
  Receive Date: 20250228
  Receipt Date: 20250228
  Transmission Date: 20250409
  Serious: Yes (Death, Life-Threatening, Hospitalization, Other)
  Sender: VERITY PHARMACEUTICALS INC.
  Company Number: FR-VER-202500011

PATIENT
  Age: 76 Year
  Sex: Male

DRUGS (2)
  1. TRIPTORELIN PAMOATE [Suspect]
     Active Substance: TRIPTORELIN PAMOATE
     Indication: Prostate cancer
     Dosage: POWDER AND SOLVENT FOR SUSPENSION FOR INJECTION; 0.125 MILLIGRAM(S) (11.25 MILLIGRAM(S), 1 IN 3 MONT
     Route: 065
     Dates: start: 2021
  2. BICALUTAMIDE [Suspect]
     Active Substance: BICALUTAMIDE
     Indication: Prostate cancer
     Dosage: 100 MILLIGRAM(S), 1 IN 1 DAY
     Route: 065
     Dates: start: 2021, end: 2021

REACTIONS (5)
  - Completed suicide [Fatal]
  - Cotard^s syndrome [Unknown]
  - Musculoskeletal disorder [Fatal]
  - Major depression [Unknown]
  - Suicidal ideation [Unknown]
